FAERS Safety Report 19765620 (Version 2)
Quarter: 2021Q4

REPORT INFORMATION
  Report Type: Spontaneous
  Country: US (occurrence: US)
  Receive Date: 20210831
  Receipt Date: 20211108
  Transmission Date: 20220303
  Serious: Yes (Death, Hospitalization)
  Sender: FDA-Public Use
  Company Number: US-VIFOR PHARMA-VIT-2021-07087

PATIENT
  Age: 56 Year
  Sex: Male
  Weight: 119 kg

DRUGS (2)
  1. MIRCERA [Suspect]
     Active Substance: METHOXY POLYETHYLENE GLYCOL-EPOETIN BETA
     Indication: Anaemia
     Route: 040
     Dates: start: 20210819, end: 20210819
  2. VENOFER [Suspect]
     Active Substance: IRON SUCROSE
     Indication: Iron deficiency anaemia
     Dosage: FIRST DOSE
     Route: 040
     Dates: start: 20210819, end: 20210819

REACTIONS (1)
  - Cardio-respiratory arrest [Fatal]

NARRATIVE: CASE EVENT DATE: 20210819
